FAERS Safety Report 22236621 (Version 1)
Quarter: 2023Q2

REPORT INFORMATION
  Report Type: Spontaneous
  Country: US (occurrence: None)
  Receive Date: 20230420
  Receipt Date: 20230420
  Transmission Date: 20230722
  Serious: No
  Sender: FDA-Public Use
  Company Number: US-ROCHE-3109996

PATIENT
  Sex: Male

DRUGS (2)
  1. ESBRIET [Suspect]
     Active Substance: PIRFENIDONE
     Indication: Idiopathic pulmonary fibrosis
     Route: 048
     Dates: start: 20220413
  2. ESBRIET [Suspect]
     Active Substance: PIRFENIDONE
     Dosage: HALF A PILL
     Route: 048
     Dates: start: 20220517

REACTIONS (4)
  - Decreased appetite [Unknown]
  - Ageusia [Unknown]
  - Retching [Unknown]
  - Asthenia [Unknown]
